FAERS Safety Report 7483931-8 (Version None)
Quarter: 2011Q2

REPORT INFORMATION
  Report Type: 
  Country: None (occurrence: None)
  Receive Date: 20110517
  Receipt Date: 20110512
  Transmission Date: 20111010
  Serious: Yes (Death)
  Sender: FDA-Public Use
  Company Number: PH-PFIZER INC-2011103646

PATIENT

DRUGS (1)
  1. TYGACIL [Suspect]
     Indication: CELLULITIS
     Dosage: UNK
     Dates: start: 20110401

REACTIONS (4)
  - RENAL FAILURE [None]
  - RENAL INJURY [None]
  - LIVER INJURY [None]
  - BLOOD CREATININE INCREASED [None]
